FAERS Safety Report 7013965-9 (Version None)
Quarter: 2010Q3

REPORT INFORMATION
  Report Type: 
  Country: None (occurrence: None)
  Receive Date: 20100925
  Receipt Date: 20100916
  Transmission Date: 20110219
  Serious: Yes (Hospitalization, Other)
  Sender: FDA-Public Use
  Company Number: US-AMGEN-QUU438810

PATIENT
  Sex: Male

DRUGS (12)
  1. EPOGEN [Suspect]
     Indication: RENAL FAILURE CHRONIC
  2. SENSIPAR [Concomitant]
     Indication: HYPERPARATHYROIDISM SECONDARY
  3. BENAZEPRIL HYDROCHLORIDE [Concomitant]
  4. MINOXIDIL [Concomitant]
  5. DILTIAZEM [Concomitant]
  6. RENAGEL [Concomitant]
  7. FOSRENOL [Concomitant]
  8. LOVASTATIN [Concomitant]
  9. ASPIRIN [Concomitant]
  10. HYDROCODONE [Concomitant]
  11. ZEMPLAR [Concomitant]
  12. PENTOXIFYLLINE [Concomitant]

REACTIONS (7)
  - ANAEMIA [None]
  - CHILLS [None]
  - FATIGUE [None]
  - FEELING COLD [None]
  - PNEUMONIA [None]
  - PYREXIA [None]
  - THERAPEUTIC RESPONSE DECREASED [None]
